FAERS Safety Report 4769108-5 (Version None)
Quarter: 2005Q3

REPORT INFORMATION
  Report Type: 
  Country: None (occurrence: None)
  Receive Date: 20050912
  Receipt Date: 20040909
  Transmission Date: 20060218
  Serious: Yes (Other)
  Sender: FDA-Public Use
  Company Number: 2004-BP-07989BP

PATIENT
  Age: 56 Year
  Sex: Male

DRUGS (3)
  1. VIRAMUNE [Suspect]
     Indication: HIV INFECTION
     Dates: start: 20040407
  2. STAVUDINE [Suspect]
     Indication: HIV INFECTION
     Dates: start: 20040407
  3. LAMIVUDINE [Suspect]
     Indication: HIV INFECTION
     Dates: start: 20040407

REACTIONS (1)
  - GAMMA-GLUTAMYLTRANSFERASE INCREASED [None]
